FAERS Safety Report 6255867-1 (Version None)
Quarter: 2009Q3

REPORT INFORMATION
  Report Type: 
  Country: None (occurrence: None)
  Receive Date: 20090703
  Receipt Date: 20090630
  Transmission Date: 20100115
  Serious: No
  Sender: FDA-Public Use
  Company Number: EG-ROCHE-635640

PATIENT
  Sex: Male

DRUGS (5)
  1. PEGASYS [Suspect]
     Route: 065
     Dates: start: 20090120, end: 20090512
  2. PEGASYS [Suspect]
     Route: 065
     Dates: start: 20090601
  3. RIBAVIRIN [Suspect]
     Route: 065
     Dates: start: 20090120, end: 20090512
  4. PHENYTOIN [Concomitant]
     Indication: EPILEPSY
  5. PHENYTOIN [Concomitant]

REACTIONS (1)
  - EPILEPSY [None]
